FAERS Safety Report 10611515 (Version 1)
Quarter: 2014Q4

REPORT INFORMATION
  Report Type: Spontaneous
  Country: US (occurrence: US)
  Receive Date: 20141126
  Receipt Date: 20141126
  Transmission Date: 20150529
  Serious: Yes (Disabling)
  Sender: FDA-Public Use
  Company Number: US-MYLANLABS-2014M1011981

PATIENT

DRUGS (7)
  1. SIMVASTATIN. [Concomitant]
     Active Substance: SIMVASTATIN
     Dosage: 80MG DAILY
     Route: 065
  2. ATENOLOL. [Concomitant]
     Active Substance: ATENOLOL
     Dosage: 50MG DAILY
     Route: 065
  3. TRAMADOL [Concomitant]
     Active Substance: TRAMADOL
     Route: 065
  4. AZGOVANC [Concomitant]
     Dosage: 40/1100MG
     Route: 065
  5. LEVOFLOXACIN. [Suspect]
     Active Substance: LEVOFLOXACIN
     Indication: INFECTION
     Dosage: DOSAGE NOT STATED
     Route: 065
  6. LEVOTHYROXINE SODIUM. [Concomitant]
     Active Substance: LEVOTHYROXINE SODIUM
     Dosage: 88MCG DAILY
     Route: 065
  7. ASPIRIN                            /00002701/ [Concomitant]
     Active Substance: ASPIRIN
     Dosage: 81MG DAILY
     Route: 065

REACTIONS (5)
  - Paraesthesia [Unknown]
  - Depression [Recovering/Resolving]
  - Flushing [Unknown]
  - Asthenia [Unknown]
  - Amnesia [Not Recovered/Not Resolved]
